FAERS Safety Report 22000787 (Version 2)
Quarter: 2023Q1

REPORT INFORMATION
  Report Type: Report from Study
  Country: US (occurrence: None)
  Receive Date: 20230216
  Receipt Date: 20230223
  Transmission Date: 20230417
  Serious: Yes (Death, Life-Threatening, Other)
  Sender: FDA-Public Use
  Company Number: 2023A037087

PATIENT
  Age: 25574 Day
  Sex: Male

DRUGS (1)
  1. TAGRISSO [Suspect]
     Active Substance: OSIMERTINIB
     Indication: Lung neoplasm malignant
     Route: 048
     Dates: start: 20190702, end: 20230131

REACTIONS (8)
  - Malignant neoplasm progression [Fatal]
  - Cardiac arrest [Fatal]
  - Nausea [Fatal]
  - Vomiting [Fatal]
  - Malaise [Unknown]
  - Fall [Unknown]
  - Hypophagia [Unknown]
  - Drug ineffective [Unknown]

NARRATIVE: CASE EVENT DATE: 20230131
